FAERS Safety Report 4615731-8 (Version None)
Quarter: 2005Q2

REPORT INFORMATION
  Report Type: 
  Country: None (occurrence: None)
  Receive Date: 20050310
  Receipt Date: 20041216
  Transmission Date: 20051028
  Serious: Yes (Other)
  Sender: FDA-Public Use
  Company Number: A03200402263

PATIENT
  Age: 59 Year
  Sex: Female
  Weight: 54.8852 kg

DRUGS (12)
  1. ELOXATIN [Suspect]
     Indication: COLORECTAL CANCER
     Dosage: 120 MG Q2W - INTRAVENOUS NOS
     Route: 042
     Dates: start: 20040630, end: 20040630
  2. ELOXATIN [Suspect]
     Indication: METASTASES TO LIVER
     Dosage: 120 MG Q2W - INTRAVENOUS NOS
     Route: 042
     Dates: start: 20040630, end: 20040630
  3. FLUOROURACIL [Concomitant]
  4. LEUCOVORIN CALCIUM [Concomitant]
  5. DEXAMETHASONE [Concomitant]
  6. GRANISETRON [Concomitant]
  7. FAMCICLOVIR [Concomitant]
  8. PHENOBARBITAL + ATROPINE + HYOSCYAMINE + SCOPOLAMINE [Concomitant]
  9. RAMIPRIL [Concomitant]
  10. GRANISETRON [Concomitant]
  11. DANAZOL [Concomitant]
  12. METFORMIN HCL [Concomitant]

REACTIONS (9)
  - ABDOMINAL PAIN [None]
  - CHANGE OF BOWEL HABIT [None]
  - DIARRHOEA [None]
  - DIZZINESS [None]
  - DYSPNOEA [None]
  - HYPOTENSION [None]
  - NAUSEA [None]
  - RALES [None]
  - RASH [None]
